FAERS Safety Report 15581058 (Version 3)
Quarter: 2019Q3

REPORT INFORMATION
  Report Type: Spontaneous
  Country: US (occurrence: US)
  Receive Date: 20181102
  Receipt Date: 20190823
  Transmission Date: 20191004
  Serious: No
  Sender: FDA-Public Use
  Company Number: US-PFIZER INC-2018445259

PATIENT
  Age: 86 Year
  Sex: Female
  Weight: 59.41 kg

DRUGS (1)
  1. LYRICA [Suspect]
     Active Substance: PREGABALIN
     Dosage: 100 MG, 1X/DAY
     Route: 048

REACTIONS (2)
  - Insomnia [Unknown]
  - Hypoaesthesia [Unknown]
